FAERS Safety Report 6151622-1 (Version None)
Quarter: 2009Q2

REPORT INFORMATION
  Report Type: 
  Country: None (occurrence: None)
  Receive Date: 20090410
  Receipt Date: 20090331
  Transmission Date: 20091009
  Serious: Yes (Other)
  Sender: FDA-Public Use
  Company Number: FR-PFIZER INC-2009192167

PATIENT

DRUGS (1)
  1. RELPAX [Suspect]
     Indication: MIGRAINE
     Dosage: UNK
     Dates: end: 20090301

REACTIONS (3)
  - ASPARTATE AMINOTRANSFERASE INCREASED [None]
  - LEUKOCYTOSIS [None]
  - POLYCYTHAEMIA [None]
